FAERS Safety Report 6012376-2 (Version None)
Quarter: 2008Q4

REPORT INFORMATION
  Report Type: 
  Country: None (occurrence: None)
  Receive Date: 20081218
  Receipt Date: 20081021
  Transmission Date: 20090506
  Serious: No
  Sender: FDA-Public Use
  Company Number: US-ASTRAZENECA-2008UW20076

PATIENT
  Age: 80 Year
  Sex: Female
  Weight: 78 kg

DRUGS (20)
  1. SYMBICORT [Suspect]
     Indication: ASTHMA
     Dosage: 160/4.5 UG TWO PUFFS TWO TIMES A DAY
     Route: 055
     Dates: start: 20080918, end: 20080919
  2. SYMBICORT [Suspect]
     Indication: CHRONIC OBSTRUCTIVE PULMONARY DISEASE
     Dosage: 160/4.5 UG TWO PUFFS TWO TIMES A DAY
     Route: 055
     Dates: start: 20080918, end: 20080919
  3. DIOVAN [Concomitant]
     Route: 048
     Dates: start: 20080619
  4. DIOVAN [Concomitant]
     Route: 048
     Dates: start: 20080129, end: 20080619
  5. THEOPHYLLINE [Concomitant]
  6. ISOSORBIDE [Concomitant]
  7. LASIX [Concomitant]
     Route: 048
     Dates: start: 20070709, end: 20080619
  8. LASIX [Concomitant]
     Route: 048
     Dates: start: 20080619
  9. METFORMIN HCL [Concomitant]
     Route: 048
     Dates: start: 20080624
  10. POTASSIUM CHLORIDE [Concomitant]
     Route: 048
     Dates: start: 20070709, end: 20080619
  11. RANEXA [Concomitant]
     Route: 048
     Dates: end: 20070801
  12. UNIPHYL [Concomitant]
     Route: 048
     Dates: start: 20070709, end: 20080619
  13. LEXAPRO [Concomitant]
     Route: 048
     Dates: end: 20070701
  14. GLIPIZIDE [Concomitant]
     Route: 048
     Dates: end: 20070501
  15. ADVAIR DISKUS 250/50 [Concomitant]
     Dosage: 250/50 I PUFF 2 TIMES A DAY
     Route: 055
     Dates: start: 20070709
  16. ADVAIR DISKUS 250/50 [Concomitant]
     Dosage: 500/50 I PUFF 2 TIMES A DAY
     Route: 055
     Dates: start: 20080619
  17. ALBUTEROL [Concomitant]
     Dosage: 2.5 MG 4 TIMES A DAY AS NEEDED
     Route: 055
     Dates: start: 20080416, end: 20080619
  18. LISINOPRIL [Concomitant]
     Route: 048
     Dates: start: 20070412, end: 20070501
  19. AMBIEN CR [Concomitant]
     Dosage: 6.25 AT BEDTIME AS NEEDED
     Route: 048
     Dates: start: 20070510
  20. IMDUR [Concomitant]
     Dosage: 30 MG DAILY
     Dates: start: 20070801

REACTIONS (7)
  - BONE PAIN [None]
  - CHEST PAIN [None]
  - DEHYDRATION [None]
  - DYSPNOEA [None]
  - HEART RATE INCREASED [None]
  - SENSATION OF HEAVINESS [None]
  - SINUS CONGESTION [None]
